FAERS Safety Report 5635545-X (Version None)
Quarter: 2008Q1

REPORT INFORMATION
  Report Type: 
  Country: None (occurrence: None)
  Receive Date: 20080222
  Receipt Date: 20080211
  Transmission Date: 20080703
  Serious: Yes (Hospitalization, Disabling, Other)
  Sender: FDA-Public Use
  Company Number: US-PFIZER INC-2008015128

PATIENT
  Sex: Female

DRUGS (10)
  1. CHANTIX [Suspect]
     Indication: SMOKING CESSATION THERAPY
  2. MEDROL [Suspect]
     Indication: INTERSTITIAL LUNG DISEASE
  3. SOLU-MEDROL [Suspect]
     Dates: start: 20060101, end: 20060101
  4. PREDNISONE TAB [Suspect]
     Indication: LUNG DISORDER
  5. CYMBALTA [Concomitant]
  6. SEROQUEL [Concomitant]
  7. TRILEPTAL [Concomitant]
  8. NEURONTIN [Concomitant]
  9. TRAZODONE HCL [Concomitant]
  10. DIAZEPAM [Concomitant]

REACTIONS (14)
  - ASTHENIA [None]
  - ASTHMA [None]
  - COMA [None]
  - CORNEAL ABRASION [None]
  - COUGH [None]
  - DELUSIONAL PERCEPTION [None]
  - FALL [None]
  - INTERSTITIAL LUNG DISEASE [None]
  - JOINT INJURY [None]
  - MYOPATHY STEROID [None]
  - OSTEONECROSIS [None]
  - OXYGEN SATURATION DECREASED [None]
  - PALPITATIONS [None]
  - SWELLING FACE [None]
